FAERS Safety Report 24345414 (Version 1)
Quarter: 2024Q3

REPORT INFORMATION
  Report Type: Spontaneous
  Country: US (occurrence: US)
  Receive Date: 20240920
  Receipt Date: 20240920
  Transmission Date: 20241016
  Serious: Yes (Other)
  Sender: TEVA
  Company Number: US-TEVA-VS-3243116

PATIENT
  Age: 60 Year
  Sex: Male

DRUGS (3)
  1. AUSTEDO XR [Suspect]
     Active Substance: DEUTETRABENAZINE
     Indication: Huntington^s disease
     Dosage: (4-WEEK PATIENT TITRATION KIT)
     Route: 048
     Dates: start: 20240726, end: 2024
  2. TRAZODONE [Concomitant]
     Active Substance: TRAZODONE HYDROCHLORIDE
     Indication: Product used for unknown indication
     Route: 065
  3. TRAZODONE [Concomitant]
     Active Substance: TRAZODONE HYDROCHLORIDE
     Indication: Product used for unknown indication
     Route: 065

REACTIONS (15)
  - Craniocerebral injury [Unknown]
  - Seizure [Unknown]
  - Restlessness [Unknown]
  - Dizziness [Unknown]
  - Abnormal behaviour [Unknown]
  - Loss of personal independence in daily activities [Unknown]
  - Dysarthria [Unknown]
  - Fall [Unknown]
  - Gait disturbance [Unknown]
  - Balance disorder [Unknown]
  - Grip strength decreased [Unknown]
  - Joint swelling [Unknown]
  - Dental caries [Unknown]
  - Oliguria [Unknown]
  - Joint injury [Unknown]

NARRATIVE: CASE EVENT DATE: 20240101
